FAERS Safety Report 13964512 (Version 2)
Quarter: 2018Q1

REPORT INFORMATION
  Report Type: Report from Study
  Country: GR (occurrence: GR)
  Receive Date: 20170913
  Receipt Date: 20180101
  Transmission Date: 20180508
  Serious: Yes (Death, Other)
  Sender: FDA-Public Use
  Company Number: GR-ROCHE-1992204

PATIENT
  Sex: Male

DRUGS (5)
  1. ZOMARIST (GREECE) [Concomitant]
  2. PIRFENIDONE. [Suspect]
     Active Substance: PIRFENIDONE
     Indication: IDIOPATHIC PULMONARY FIBROSIS
     Route: 065
     Dates: start: 20120126, end: 20120128
  3. NAC (ACETYLCYSTEINE) [Concomitant]
  4. SALOSPIR [Concomitant]
     Active Substance: ASPIRIN
  5. ORIZAL [Concomitant]
     Active Substance: AMLODIPINE BESYLATE\OLMESARTAN MEDOXOMIL

REACTIONS (2)
  - Pneumonia [Unknown]
  - Septic shock [Fatal]
